FAERS Safety Report 11991871 (Version 1)
Quarter: 2016Q1

REPORT INFORMATION
  Report Type: Spontaneous
  Country: US (occurrence: None)
  Receive Date: 20160202
  Receipt Date: 20160202
  Transmission Date: 20160526
  Serious: No
  Sender: FDA-Public Use
  Company Number: None

PATIENT
  Age: 37 Year

DRUGS (1)
  1. CYMBALTA [Suspect]
     Active Substance: DULOXETINE HYDROCHLORIDE

REACTIONS (7)
  - Influenza like illness [None]
  - Dizziness [None]
  - Asthenia [None]
  - Fatigue [None]
  - Drug withdrawal syndrome [None]
  - Weight increased [None]
  - Hepatic enzyme increased [None]

NARRATIVE: CASE EVENT DATE: 20160122
